FAERS Safety Report 22355707 (Version 1)
Quarter: 2023Q2

REPORT INFORMATION
  Report Type: Report from Study
  Country: IN (occurrence: IN)
  Receive Date: 20230523
  Receipt Date: 20230523
  Transmission Date: 20230722
  Serious: Yes (Hospitalization)
  Sender: FDA-Public Use
  Company Number: IN-MYLANLABS-2023M1053200

PATIENT
  Age: 49 Year
  Sex: Male

DRUGS (1)
  1. METHOTREXATE [Suspect]
     Active Substance: METHOTREXATE
     Indication: Psoriasis
     Dosage: UNK, CUMULATIVE DOSE: 65 MG
     Route: 065

REACTIONS (4)
  - Toxicity to various agents [Recovered/Resolved]
  - Penile erosion [Recovered/Resolved]
  - Intentional product misuse [Recovered/Resolved]
  - Skin erosion [Recovered/Resolved]
